FAERS Safety Report 9333826 (Version 1)
Quarter: 2013Q2

REPORT INFORMATION
  Report Type: Spontaneous
  Country: CN (occurrence: None)
  Receive Date: 20130604
  Receipt Date: 20130604
  Transmission Date: 20140414
  Serious: Yes (Other)
  Sender: FDA-Public Use
  Company Number: 2013000119

PATIENT
  Age: 39 Year
  Sex: Female
  Weight: 60 kg

DRUGS (1)
  1. ACEON [Suspect]
     Route: 048
     Dates: start: 20120903, end: 20120910

REACTIONS (3)
  - Tinnitus [None]
  - Headache [None]
  - Dizziness [None]
